FAERS Safety Report 14141215 (Version 1)
Quarter: 2017Q4

REPORT INFORMATION
  Report Type: Spontaneous
  Country: JP (occurrence: JP)
  Receive Date: 20171030
  Receipt Date: 20171030
  Transmission Date: 20180321
  Serious: Yes (Hospitalization, Other)
  Sender: FDA-Public Use
  Company Number: JP-JNJFOC-20171018809

PATIENT
  Age: 5 Decade
  Sex: Female

DRUGS (1)
  1. INVEGA [Suspect]
     Active Substance: PALIPERIDONE
     Indication: SCHIZOPHRENIA
     Route: 048

REACTIONS (5)
  - Pleurothotonus [Not Recovered/Not Resolved]
  - Cogwheel rigidity [Recovered/Resolved]
  - Upper limb fracture [Unknown]
  - Contusion [Unknown]
  - Fall [Unknown]
